FAERS Safety Report 4693844-2 (Version None)
Quarter: 2005Q2

REPORT INFORMATION
  Report Type: 
  Country: None (occurrence: None)
  Receive Date: 20050616
  Receipt Date: 20050603
  Transmission Date: 20051028
  Serious: Yes (Other)
  Sender: FDA-Public Use
  Company Number: 2005084009

PATIENT
  Sex: Male

DRUGS (5)
  1. VIAGRA [Suspect]
     Indication: ERECTILE DYSFUNCTION
     Dosage: 50 MG (50 MG), ORAL
     Route: 048
     Dates: start: 19990101
  2. VASOPRIL              (ENALAPRIL MALEATE) [Concomitant]
  3. ACETYLSALICYLIC ACID SRT [Concomitant]
  4. NICOTINIC ACID [Concomitant]
  5. SIMVASTATIN [Concomitant]

REACTIONS (2)
  - PAIN IN JAW [None]
  - VASCULAR BYPASS GRAFT [None]
